FAERS Safety Report 4349303-X (Version None)
Quarter: 2004Q2

REPORT INFORMATION
  Report Type: 
  Country: None (occurrence: None)
  Receive Date: 20040426
  Receipt Date: 20040413
  Transmission Date: 20050107
  Serious: No
  Sender: FDA-Public Use
  Company Number: 04H-062-0257416-00

PATIENT
  Sex: 0

DRUGS (3)
  1. LEUCOVORIN CALCIUM [Suspect]
     Indication: CHEMOTHERAPY
     Dosage: 300 MG/M2, ONCE, INTRAVENOUS BOLUS
     Route: 040
  2. ETOPOSIDE [Concomitant]
  3. FLUOROURACIL [Concomitant]

REACTIONS (1)
  - ANGINA PECTORIS [None]
